FAERS Safety Report 7174026-1 (Version None)
Quarter: 2010Q4

REPORT INFORMATION
  Report Type: 
  Country: None (occurrence: None)
  Receive Date: 20101219
  Receipt Date: 20100316
  Transmission Date: 20110411
  Serious: No
  Sender: FDA-Public Use
  Company Number: US-AMGEN-KDL399786

PATIENT

DRUGS (23)
  1. ENBREL [Suspect]
     Indication: PRODUCT USED FOR UNKNOWN INDICATION
     Dosage: 50 MG, QWK
     Route: 058
  2. CENTRUM SILVER [Concomitant]
     Dosage: UNK UNK, UNK
  3. TOLTERODINE TARTRATE [Concomitant]
     Dosage: 4 MG, UNK
  4. FUROSEMIDE [Concomitant]
     Dosage: 40 MG, UNK
  5. CALCITRIOL [Concomitant]
     Dosage: .25 A?G, UNK
  6. LORATADINE [Concomitant]
     Dosage: 10 MG, UNK
  7. LEFLUNOMIDE [Concomitant]
     Dosage: 20 MG, UNK
  8. INSULIN GLARGINE [Concomitant]
     Dosage: 100 ML, UNK
  9. ORPHENADRINE CITRATE [Concomitant]
     Dosage: 100 MG, UNK
  10. FOLIC ACID [Concomitant]
     Dosage: 1 MG, UNK
  11. METOPROLOL [Concomitant]
     Dosage: 50 MG, UNK
  12. ROSUVASTATIN CALCIUM [Concomitant]
     Dosage: 20 MG, UNK
  13. ALLOPURINOL [Concomitant]
     Dosage: 300 MG, UNK
  14. TEMAZEPAM [Concomitant]
     Dosage: 15 MG, UNK
  15. ACIDOPHILUS [Concomitant]
     Dosage: UNK UNK, UNK
  16. CHROMIUM CHLORIDE [Concomitant]
     Dosage: 400 A?G, UNK
  17. FISH OIL [Concomitant]
     Dosage: 1200 MG, UNK
  18. IRON [Concomitant]
     Dosage: 325 MG, UNK
  19. OSTEOBIFLEX [Concomitant]
     Dosage: UNK UNK, UNK
  20. ASPIRIN [Concomitant]
     Dosage: 81 MG, UNK
  21. LISINOPRIL [Concomitant]
     Dosage: 5 MG, UNK
  22. OMEPRAZOLE [Concomitant]
     Dosage: 20 MG, UNK
  23. PROCRIT [Concomitant]
     Dosage: 10000 ML, UNK

REACTIONS (1)
  - INJECTION SITE PAIN [None]
